FAERS Safety Report 5468580-5 (Version None)
Quarter: 2007Q3

REPORT INFORMATION
  Report Type: 
  Country: None (occurrence: None)
  Receive Date: 20070926
  Receipt Date: 20070919
  Transmission Date: 20080115
  Serious: Yes (Hospitalization)
  Sender: FDA-Public Use
  Company Number: ES-JNJFOC-20070805915

PATIENT
  Age: 59 Year
  Sex: Female
  Weight: 50 kg

DRUGS (4)
  1. REMICADE [Suspect]
     Indication: RHEUMATOID ARTHRITIS
     Dosage: TOTAL OF 34 INFUSIONS
     Route: 042
  2. METHROTREXATE [Concomitant]
  3. METHROTREXATE [Concomitant]
  4. METHYLPREDNISOLONE [Concomitant]
     Dosage: 2MG/2UH

REACTIONS (1)
  - PULMONARY TUBERCULOSIS [None]
